FAERS Safety Report 8073013-9 (Version None)
Quarter: 2012Q1

REPORT INFORMATION
  Report Type: 
  Country: None (occurrence: None)
  Receive Date: 20120126
  Receipt Date: 20120116
  Transmission Date: 20120608
  Serious: Yes (Other)
  Sender: FDA-Public Use
  Company Number: JP-ASTRAZENECA-2012SE04449

PATIENT
  Age: 7 Year
  Sex: Female

DRUGS (4)
  1. ZADITEN [Concomitant]
     Route: 065
     Dates: end: 20120114
  2. CANDESARTAN CILEXETIL [Suspect]
     Indication: PROTEINURIA
     Route: 048
     Dates: start: 20111229, end: 20120101
  3. LISINOPRIL [Concomitant]
     Route: 048
     Dates: start: 20111229
  4. LISINOPRIL [Concomitant]
     Route: 048
     Dates: start: 20110317

REACTIONS (3)
  - HYPOTHERMIA [None]
  - HYPERHIDROSIS [None]
  - ANAPHYLACTIC SHOCK [None]
